FAERS Safety Report 4317642-4 (Version None)
Quarter: 2004Q1

REPORT INFORMATION
  Report Type: 
  Country: None (occurrence: None)
  Receive Date: 20040315
  Receipt Date: 20031215
  Transmission Date: 20041129
  Serious: Yes (Other)
  Sender: FDA-Public Use
  Company Number: FR-GLAXOSMITHKLINE-B0317703A

PATIENT
  Age: 59 Year
  Sex: Female
  Weight: 53 kg

DRUGS (7)
  1. DEROXAT [Suspect]
     Dates: start: 20031001, end: 20031101
  2. CACIT [Concomitant]
  3. DIDRONEL [Concomitant]
  4. ADVIL [Concomitant]
  5. SURGESTONE [Concomitant]
     Indication: MENOPAUSE
  6. ESTROGEN [Concomitant]
     Indication: MENOPAUSE
     Route: 062
  7. AMLOR [Concomitant]

REACTIONS (4)
  - ABDOMINAL PAIN UPPER [None]
  - DYSPEPSIA [None]
  - PANCREATIC CYST [None]
  - PANCREATITIS ACUTE [None]
